FAERS Safety Report 5558066-1 (Version None)
Quarter: 2007Q4

REPORT INFORMATION
  Report Type: 
  Country: None (occurrence: None)
  Receive Date: 20071214
  Receipt Date: 20071126
  Transmission Date: 20080405
  Serious: Yes (Other)
  Sender: FDA-Public Use
  Company Number: DE-RANBAXY-2007RR-09988

PATIENT

DRUGS (6)
  1. SIMVA BASICS 20MG FILMTABLETTEN [Suspect]
     Indication: HYPERCHOLESTEROLAEMIA
     Dosage: 10 MG, UNK
     Route: 048
     Dates: start: 20070614, end: 20070906
  2. MAGNESIUM [Concomitant]
  3. FISH OIL [Concomitant]
     Indication: HYPERCHOLESTEROLAEMIA
  4. HOMOCYSTEINE [Concomitant]
  5. FOLIC ACID [Concomitant]
  6. CYANOCOBALAMIN [Concomitant]

REACTIONS (4)
  - ARTHRALGIA [None]
  - JOINT SWELLING [None]
  - MUSCLE SPASMS [None]
  - MYALGIA [None]
